FAERS Safety Report 10440319 (Version 2)
Quarter: 2015Q1

REPORT INFORMATION
  Report Type: Spontaneous
  Country: US (occurrence: US)
  Receive Date: 20140909
  Receipt Date: 20150330
  Transmission Date: 20150720
  Serious: No
  Sender: FDA-Public Use
  Company Number: US-AMGEN-USASP2014067914

PATIENT
  Sex: Female
  Weight: 59.41 kg

DRUGS (1)
  1. XGEVA [Suspect]
     Active Substance: DENOSUMAB
     Indication: PROPHYLAXIS
     Dosage: 120 MG, QMO
     Route: 058

REACTIONS (3)
  - Mood swings [Unknown]
  - Neuropathy peripheral [Unknown]
  - Hypoaesthesia [Unknown]
